FAERS Safety Report 16148278 (Version 2)
Quarter: 2019Q2

REPORT INFORMATION
  Report Type: Spontaneous
  Country: US (occurrence: US)
  Receive Date: 20190402
  Receipt Date: 20190515
  Transmission Date: 20190711
  Serious: No
  Sender: FDA-Public Use
  Company Number: US-MYLANLABS-2019M1023492

PATIENT
  Sex: Female
  Weight: 77 kg

DRUGS (1)
  1. OLMESARTAN MEDOXOMIL TABLETS [Suspect]
     Active Substance: OLMESARTAN MEDOXOMIL
     Indication: HYPERTENSION
     Dosage: 40 MILLIGRAM, QD

REACTIONS (2)
  - Product taste abnormal [Not Recovered/Not Resolved]
  - Dysgeusia [Not Recovered/Not Resolved]
